FAERS Safety Report 16505323 (Version 2)
Quarter: 2019Q3

REPORT INFORMATION
  Report Type: Spontaneous
  Country: US (occurrence: US)
  Receive Date: 20190701
  Receipt Date: 20190930
  Transmission Date: 20191004
  Serious: No
  Sender: FDA-Public Use
  Company Number: US-CLOVIS ONCOLOGY-CLO-2019-000660

PATIENT
  Age: 63 Year
  Sex: Female

DRUGS (11)
  1. RUBRACA [Suspect]
     Active Substance: RUCAPARIB CAMSYLATE
     Dosage: 600 MG, BID
     Route: 048
     Dates: start: 201904, end: 2019
  2. COLACE [Concomitant]
     Active Substance: DOCUSATE SODIUM
     Indication: CONSTIPATION
  3. PROTONIX [Concomitant]
     Active Substance: PANTOPRAZOLE SODIUM
     Indication: GASTROINTESTINAL DISORDER
  4. RUBRACA [Suspect]
     Active Substance: RUCAPARIB CAMSYLATE
     Indication: GENE MUTATION
     Dosage: 600 MG, BID
     Route: 048
     Dates: start: 20190318
  5. RUBRACA [Suspect]
     Active Substance: RUCAPARIB CAMSYLATE
     Indication: OVARIAN CANCER
     Dosage: 600 MG, BID
     Route: 048
     Dates: start: 201904
  6. MACROBID [Concomitant]
     Active Substance: NITROFURANTOIN\NITROFURANTOIN MONOHYDRATE
     Indication: CYSTITIS INTERSTITIAL
  7. CYSTA MD [Concomitant]
     Indication: PRODUCT USED FOR UNKNOWN INDICATION
  8. VITAMIN B [Concomitant]
     Active Substance: VITAMIN B
     Indication: PRODUCT USED FOR UNKNOWN INDICATION
  9. RUBRACA [Suspect]
     Active Substance: RUCAPARIB CAMSYLATE
     Indication: OVARIAN CANCER
     Dosage: 600 MG, BID
     Route: 048
     Dates: start: 201903
  10. TYLENOL ARTHRITIS PAIN [Concomitant]
     Active Substance: ACETAMINOPHEN
     Indication: ARTHROPATHY
  11. VITAMIN C [Concomitant]
     Active Substance: ASCORBIC ACID
     Indication: PRODUCT USED FOR UNKNOWN INDICATION

REACTIONS (28)
  - Dry skin [Unknown]
  - White blood cell count decreased [Unknown]
  - Photosensitivity reaction [Not Recovered/Not Resolved]
  - Weight increased [Not Recovered/Not Resolved]
  - Decreased activity [Unknown]
  - Nail disorder [Not Recovered/Not Resolved]
  - Eczema [Unknown]
  - Platelet count decreased [Unknown]
  - Feeling abnormal [Not Recovered/Not Resolved]
  - Fluid retention [Unknown]
  - Pain in extremity [Unknown]
  - Lethargy [Not Recovered/Not Resolved]
  - Insomnia [Not Recovered/Not Resolved]
  - Haemoglobin decreased [Unknown]
  - Fatigue [Recovered/Resolved]
  - Dyspnoea [Unknown]
  - Influenza like illness [Recovered/Resolved]
  - Swelling [Not Recovered/Not Resolved]
  - Blood blister [Recovered/Resolved]
  - Vomiting [Recovered/Resolved]
  - Retching [Not Recovered/Not Resolved]
  - Chest pain [Not Recovered/Not Resolved]
  - Paraesthesia [Unknown]
  - Asthenia [Not Recovered/Not Resolved]
  - Hiccups [Not Recovered/Not Resolved]
  - Onychomadesis [Unknown]
  - Peripheral swelling [Unknown]
  - Pruritus [Not Recovered/Not Resolved]

NARRATIVE: CASE EVENT DATE: 2019
